FAERS Safety Report 4727731-8 (Version None)
Quarter: 2005Q3

REPORT INFORMATION
  Report Type: 
  Country: None (occurrence: None)
  Receive Date: 20050727
  Receipt Date: 20050714
  Transmission Date: 20060218
  Serious: Yes (Other)
  Sender: FDA-Public Use
  Company Number: 2005095516

PATIENT
  Age: 70 Year
  Sex: Female
  Weight: 65 kg

DRUGS (8)
  1. SERTRALINE HCL [Suspect]
     Indication: DEPRESSION
     Dosage: 100 MG (1 IN 1 D), ORAL
     Route: 048
     Dates: start: 20040101
  2. LIPITOR [Concomitant]
  3. THYROXINE           (LEVOTHYROXINE) [Concomitant]
  4. CRESTOR [Concomitant]
  5. ZURCALE               (PANTOPRAZOLE SODIUM) [Concomitant]
  6. SELOZOK                (METOPROLOL SUCCINATE) [Concomitant]
  7. INSULIN [Concomitant]
  8. GLUCOPHAGE [Concomitant]

REACTIONS (3)
  - CONDITION AGGRAVATED [None]
  - DRUG INTERACTION [None]
  - GAMMA-GLUTAMYLTRANSFERASE INCREASED [None]
